APPROVED DRUG PRODUCT: GLIPIZIDE
Active Ingredient: GLIPIZIDE
Strength: 5MG
Dosage Form/Route: TABLET;ORAL
Application: A074550 | Product #001
Applicant: ACCORD HEALTHCARE INC
Approved: Sep 11, 1997 | RLD: No | RS: No | Type: DISCN